FAERS Safety Report 4286111-2 (Version None)
Quarter: 2004Q1

REPORT INFORMATION
  Report Type: 
  Country: None (occurrence: None)
  Receive Date: 20040120
  Receipt Date: 20030127
  Transmission Date: 20041129
  Serious: Yes (Hospitalization)
  Sender: FDA-Public Use
  Company Number: A03200201088

PATIENT
  Age: 70 Year
  Sex: Female
  Weight: 77.1115 kg

DRUGS (7)
  1. PLAVIX [Suspect]
     Indication: TRANSIENT ISCHAEMIC ATTACK
     Dosage: 75 MG QD - ORAL
     Route: 048
     Dates: end: 20010601
  2. PLAVIX [Suspect]
     Indication: TRANSIENT ISCHAEMIC ATTACK
     Dosage: 75 MG QD - ORAL
     Route: 048
  3. AMOXICILLIN - FORM [Suspect]
     Dosage: ORAL
     Route: 048
  4. ATORVASTATIN [Concomitant]
  5. LEVOTHYROXINE SODIUM [Concomitant]
  6. CLONAZEPAM [Concomitant]
  7. ACETYLSALICYLIC ACID [Concomitant]

REACTIONS (3)
  - MIGRAINE [None]
  - PRURITUS GENERALISED [None]
  - TRANSIENT ISCHAEMIC ATTACK [None]
